FAERS Safety Report 15136558 (Version 1)
Quarter: 2018Q3

REPORT INFORMATION
  Report Type: Report from Study
  Country: US (occurrence: US)
  Receive Date: 20180712
  Receipt Date: 20180712
  Transmission Date: 20181010
  Serious: Yes (Other)
  Sender: FDA-Public Use
  Company Number: US-INCYTE CORPORATION-2018IN006715

PATIENT

DRUGS (1)
  1. JAKAFI [Suspect]
     Active Substance: RUXOLITINIB
     Indication: MYELOFIBROSIS
     Dosage: 10 MG, BID
     Route: 048
     Dates: start: 20180619

REACTIONS (8)
  - Constipation [Unknown]
  - Pollakiuria [Unknown]
  - Myalgia [Unknown]
  - Fatigue [Unknown]
  - Weight decreased [Unknown]
  - Faecaloma [Unknown]
  - Abdominal pain upper [Unknown]
  - Spleen disorder [Unknown]

NARRATIVE: CASE EVENT DATE: 201807
